FAERS Safety Report 5100037-3 (Version None)
Quarter: 2006Q3

REPORT INFORMATION
  Report Type: 
  Country: None (occurrence: None)
  Receive Date: 20060908
  Receipt Date: 20060821
  Transmission Date: 20061208
  Serious: Yes (Other)
  Sender: FDA-Public Use
  Company Number: JP-SANOFI-SYNTHELABO-A01200607264

PATIENT
  Sex: Male

DRUGS (2)
  1. NPH INSULIN [Concomitant]
     Indication: DRUG USE FOR UNKNOWN INDICATION
     Dosage: UNK
     Route: 058
  2. MYSLEE [Suspect]
     Indication: INSOMNIA
     Route: 048

REACTIONS (2)
  - AMNESIA [None]
  - DELIRIUM [None]
